FAERS Safety Report 9476267 (Version 3)
Quarter: 2013Q4

REPORT INFORMATION
  Report Type: Spontaneous
  Country: JP (occurrence: JP)
  Receive Date: 20130826
  Receipt Date: 20131001
  Transmission Date: 20140711
  Serious: Yes (Hospitalization, Other)
  Sender: FDA-Public Use
  Company Number: JP-BAYER-2013-081355

PATIENT
  Age: 63 Year
  Sex: Male
  Weight: 62 kg

DRUGS (12)
  1. STIVARGA [Suspect]
     Indication: COLORECTAL CANCER
     Dosage: 160 MG, QD, ONE CYCLE IS STIVARGA 160MG/DAY ON FOR 3 WEEKS AND OFF FOR 1 WEEK.
     Route: 048
     Dates: start: 20130618, end: 20130716
  2. LOXONIN [Concomitant]
     Indication: PAIN MANAGEMENT
     Dosage: DAILY DOSE 180 MG
     Route: 048
     Dates: start: 20130507
  3. MUCOSTA [Concomitant]
     Indication: PAIN MANAGEMENT
     Dosage: DAILY DOSE 300 MG
     Route: 048
     Dates: start: 20130507
  4. GAMOFA [Concomitant]
     Indication: GASTRITIS PROPHYLAXIS
     Dosage: DAILY DOSE 40 MG
     Route: 048
     Dates: start: 20130507
  5. MINOMYCIN [Concomitant]
     Dosage: DAILY DOSE 200 MG
     Route: 048
     Dates: start: 20130507
  6. ENTERONON R [Concomitant]
     Dosage: DAILY DOSE 2 G
     Route: 048
     Dates: start: 20130507
  7. LOCOID [Concomitant]
     Dosage: UNK
     Route: 061
     Dates: start: 20130409
  8. DERMOVATE [Concomitant]
     Dosage: UNK
     Route: 061
     Dates: start: 20130409
  9. MYSER [Concomitant]
     Dosage: UNK
     Route: 061
     Dates: start: 20130409
  10. TRAMAL [Concomitant]
     Indication: PAIN MANAGEMENT
     Dosage: DAILY DOSE 200 MG
     Route: 048
     Dates: start: 20130618
  11. PREDNISOLONE [Concomitant]
     Dosage: DAILY DOSE 10 MG
     Route: 048
     Dates: start: 20130618
  12. LYRICA [Concomitant]
     Dosage: DAILY DOSE 150 MG
     Route: 048
     Dates: start: 20130618

REACTIONS (5)
  - Subcutaneous haematoma [Not Recovered/Not Resolved]
  - Gastrointestinal haemorrhage [Recovered/Resolved]
  - Hypertension [Not Recovered/Not Resolved]
  - Blood bilirubin increased [Recovered/Resolved]
  - Loss of consciousness [Recovered/Resolved]
